FAERS Safety Report 6802979-7 (Version None)
Quarter: 2010Q2

REPORT INFORMATION
  Report Type: 
  Country: None (occurrence: None)
  Receive Date: 20100628
  Receipt Date: 20100526
  Transmission Date: 20101027
  Serious: No
  Sender: FDA-Public Use
  Company Number: US-BAYER-201016100BCC

PATIENT
  Age: 86 Year
  Sex: Female
  Weight: 56 kg

DRUGS (2)
  1. ALEVE (CAPLET) [Suspect]
     Indication: DRUG USE FOR UNKNOWN INDICATION
     Dosage: TOTAL DAILY DOSE: 440 MG  UNIT DOSE: 220 MG
     Route: 048
     Dates: start: 20100501
  2. METHIMAZOLE [Concomitant]
     Route: 065

REACTIONS (1)
  - DYSPEPSIA [None]
